FAERS Safety Report 16660987 (Version 1)
Quarter: 2019Q3

REPORT INFORMATION
  Report Type: Other
  Country: ES (occurrence: ES)
  Receive Date: 20190802
  Receipt Date: 20190802
  Transmission Date: 20191004
  Serious: Yes (Other)
  Sender: FDA-Public Use
  Company Number: ES-APOTEX-2019AP019161

PATIENT
  Age: 77 Year
  Sex: Male
  Weight: 92.5 kg

DRUGS (6)
  1. INDAPAMIDA [Interacting]
     Active Substance: INDAPAMIDE
     Indication: HYPERTENSION
     Dosage: 2.5 MG, QD (PER 24 HOURS)
     Route: 048
     Dates: start: 200609
  2. TRULICITY [Interacting]
     Active Substance: DULAGLUTIDE
     Indication: DIABETES MELLITUS INADEQUATE CONTROL
     Dosage: 1.5 MG, Q.WK.
     Route: 058
     Dates: start: 20181130, end: 20190218
  3. TRAJENTA [Interacting]
     Active Substance: LINAGLIPTIN
     Indication: DIABETES MELLITUS
     Dosage: 5 MG, QD (PER 24 HOURS)
     Route: 048
     Dates: start: 20180316
  4. ENALAPRIL [Interacting]
     Active Substance: ENALAPRIL
     Indication: HYPERTENSION
     Dosage: 5 MG, QD (PER 24 HOURS)
     Route: 048
     Dates: start: 20181130
  5. AMARYL [Interacting]
     Active Substance: GLIMEPIRIDE
     Indication: DIABETES MELLITUS
     Dosage: 2 MG, QD (PER 24 HOURS)
     Route: 048
     Dates: start: 20051130
  6. METFORMIN [Suspect]
     Active Substance: METFORMIN HYDROCHLORIDE
     Indication: DIABETES MELLITUS
     Dosage: 850 MG, Q.12H
     Route: 048
     Dates: start: 20180404

REACTIONS (5)
  - Pancreatitis [Recovered/Resolved]
  - Abdominal pain [Recovered/Resolved]
  - Vomiting [Recovered/Resolved]
  - Diarrhoea [Recovered/Resolved]
  - Nausea [Recovered/Resolved]

NARRATIVE: CASE EVENT DATE: 201902
